FAERS Safety Report 9031678 (Version 1)
Quarter: 2013Q1

REPORT INFORMATION
  Report Type: Report from Study
  Country: DE (occurrence: DE)
  Receive Date: 20130124
  Receipt Date: 20130124
  Transmission Date: 20140127
  Serious: Yes (Death, Hospitalization)
  Sender: FDA-Public Use
  Company Number: DE-ACTELION-A-US2012-66428

PATIENT
  Age: 30 Year
  Sex: Female

DRUGS (4)
  1. VENTAVIS [Suspect]
     Indication: PULMONARY HYPERTENSION
     Dosage: UNK
     Route: 055
     Dates: start: 20090921, end: 20120604
  2. TRACLEER [Concomitant]
     Indication: PULMONARY ARTERIAL HYPERTENSION
     Route: 048
  3. REVATIO [Concomitant]
  4. BETASERON [Concomitant]
     Dosage: UNK
     Dates: start: 20100204, end: 20120601

REACTIONS (11)
  - Death [Fatal]
  - Chest pain [Unknown]
  - Nerve injury [Unknown]
  - Nausea [Unknown]
  - Headache [Unknown]
  - Pulmonary hypertension [Not Recovered/Not Resolved]
  - Disease progression [Not Recovered/Not Resolved]
  - Iatrogenic injury [None]
  - Fatigue [None]
  - General physical health deterioration [None]
  - Device difficult to use [None]
